FAERS Safety Report 6694085-X (Version None)
Quarter: 2010Q2

REPORT INFORMATION
  Report Type: 
  Country: None (occurrence: None)
  Receive Date: 20100423
  Receipt Date: 20100414
  Transmission Date: 20101027
  Serious: Yes (Hospitalization)
  Sender: FDA-Public Use
  Company Number: ZA-SANOFI-AVENTIS-2010SA005550

PATIENT
  Age: 79 Year
  Sex: Male
  Weight: 68 kg

DRUGS (20)
  1. BLINDED THERAPY [Suspect]
     Indication: PROSTATE CANCER METASTATIC
     Route: 042
     Dates: start: 20090625, end: 20090625
  2. BLINDED THERAPY [Suspect]
     Route: 042
     Dates: start: 20091029, end: 20091029
  3. DOCETAXEL [Suspect]
     Indication: PROSTATE CANCER METASTATIC
     Route: 042
     Dates: start: 20090625, end: 20090625
  4. DOCETAXEL [Suspect]
     Route: 042
     Dates: start: 20091029, end: 20091029
  5. PREDNISOLONE [Suspect]
     Dates: start: 20090625, end: 20091208
  6. ZOLADEX [Concomitant]
     Dates: start: 20070419
  7. CRESTOR [Concomitant]
     Dates: start: 20060101
  8. MICARDIS [Concomitant]
     Dates: start: 20090528
  9. CONCOR [Concomitant]
     Dates: start: 20060101
  10. DISPRIN [Concomitant]
     Dates: start: 20060701
  11. ELTROXIN ^GLAXO^ [Concomitant]
     Dates: start: 19790101
  12. WARFARIN SODIUM [Concomitant]
     Dates: start: 20080601
  13. PROCYDIN [Concomitant]
  14. VITAMIN B COMPLEX CAP [Concomitant]
  15. FOLIC ACID [Concomitant]
  16. LOVAZA [Concomitant]
  17. LANSOPRAZOLE [Concomitant]
     Dates: start: 20090626
  18. CLOPAMON ^INTRAMED^ [Concomitant]
     Dates: start: 20090626
  19. CARVEDILOL [Concomitant]
     Dates: start: 20090626
  20. BUSCOPAN [Concomitant]
     Dates: start: 20091019

REACTIONS (1)
  - ENTEROVESICAL FISTULA [None]
